FAERS Safety Report 12941915 (Version 2)
Quarter: 2016Q4

REPORT INFORMATION
  Report Type: Spontaneous
  Country: SG (occurrence: SG)
  Receive Date: 20161114
  Receipt Date: 20161114
  Transmission Date: 20170207
  Serious: Yes (Hospitalization)
  Sender: FDA-Public Use
  Company Number: SG-ASTRAZENECA-2016SF17368

PATIENT
  Age: 68 Year
  Sex: Female

DRUGS (6)
  1. QUETIAPINE. [Suspect]
     Active Substance: QUETIAPINE
     Indication: PSYCHOTIC DISORDER
     Route: 048
  2. QUETIAPINE. [Suspect]
     Active Substance: QUETIAPINE
     Indication: PSYCHOTIC DISORDER
     Dosage: 12.5 MG IN THE MORNING AND 25 MG AT NIGHT.
     Route: 048
  3. DONEPEZIL. [Concomitant]
     Active Substance: DONEPEZIL
     Route: 048
  4. QUETIAPINE. [Suspect]
     Active Substance: QUETIAPINE
     Indication: NEUROPSYCHIATRIC SYMPTOMS
     Dosage: 12.5 MG IN THE MORNING AND 25 MG AT NIGHT.
     Route: 048
  5. FLUVOXAMINE [Concomitant]
     Active Substance: FLUVOXAMINE
  6. QUETIAPINE. [Suspect]
     Active Substance: QUETIAPINE
     Indication: NEUROPSYCHIATRIC SYMPTOMS
     Route: 048

REACTIONS (1)
  - Cutaneous vasculitis [Recovered/Resolved]
